FAERS Safety Report 22355730 (Version 1)
Quarter: 2023Q2

REPORT INFORMATION
  Report Type: Spontaneous
  Country: US (occurrence: None)
  Receive Date: 20230522
  Receipt Date: 20230522
  Transmission Date: 20230722
  Serious: Yes (Life-Threatening, Other)
  Sender: FDA-Public Use
  Company Number: None

PATIENT

DRUGS (1)
  1. ANGIOTENSIN II [Suspect]
     Active Substance: ANGIOTENSIN II

REACTIONS (4)
  - Device malfunction [None]
  - Device occlusion [None]
  - Incorrect dose administered by device [None]
  - Blood pressure decreased [None]

NARRATIVE: CASE EVENT DATE: 20230516
